FAERS Safety Report 9208714 (Version 1)
Quarter: 2013Q1

REPORT INFORMATION
  Report Type: Spontaneous
  Country: US (occurrence: None)
  Receive Date: 20120817
  Receipt Date: 20120817
  Transmission Date: 20140127
  Serious: Yes (Hospitalization, Other)
  Sender: FDA-Public Use
  Company Number: 2011US-45665

PATIENT
  Sex: Male

DRUGS (1)
  1. SOTRET [Suspect]
     Indication: ACNE
     Route: 048

REACTIONS (2)
  - Inflammatory bowel disease [None]
  - Abdominal pain [None]
